FAERS Safety Report 4626263-5 (Version None)
Quarter: 2005Q2

REPORT INFORMATION
  Report Type: 
  Country: None (occurrence: None)
  Receive Date: 20050404
  Receipt Date: 20050228
  Transmission Date: 20051028
  Serious: Yes (Other)
  Sender: FDA-Public Use
  Company Number: JP-ROCHE-397193

PATIENT
  Age: 39 Year
  Sex: Female

DRUGS (2)
  1. TAMIFLU [Suspect]
     Indication: INFLUENZA
     Route: 048
     Dates: start: 20050217, end: 20050217
  2. TAMIFLU [Suspect]
     Route: 048
     Dates: start: 20050216, end: 20050216

REACTIONS (1)
  - HAEMATURIA [None]
